FAERS Safety Report 17490679 (Version 1)
Quarter: 2020Q1

REPORT INFORMATION
  Report Type: Spontaneous
  Country: US (occurrence: US)
  Receive Date: 20200303
  Receipt Date: 20200303
  Transmission Date: 20200409
  Serious: No
  Sender: FDA-Public Use
  Company Number: US-AKORN PHARMACEUTICALS-2019AKN00707

PATIENT
  Age: 29 Year
  Sex: Female
  Weight: 94.33 kg

DRUGS (3)
  1. PARAGARD T 380A [Concomitant]
     Active Substance: COPPER
     Route: 015
  2. MYORISAN [Suspect]
     Active Substance: ISOTRETINOIN
     Indication: ACNE CYSTIC
     Dosage: 40 MG, 1X/DAY
     Dates: start: 20181101, end: 201812
  3. MYORISAN [Suspect]
     Active Substance: ISOTRETINOIN
     Indication: ACNE
     Dosage: 80 MG, 1X/DAY
     Dates: start: 201812, end: 20190329

REACTIONS (3)
  - Drug ineffective [Recovered/Resolved]
  - Acne cystic [Recovering/Resolving]
  - Off label use [Recovered/Resolved]

NARRATIVE: CASE EVENT DATE: 20181101
